FAERS Safety Report 5366931-3 (Version None)
Quarter: 2007Q2

REPORT INFORMATION
  Report Type: 
  Country: None (occurrence: None)
  Receive Date: 20070622
  Receipt Date: 20070219
  Transmission Date: 20071010
  Serious: No
  Sender: FDA-Public Use
  Company Number: US-ASTRAZENECA-2007UW03213

PATIENT
  Age: 26 Year
  Sex: Male
  Weight: 83.9 kg

DRUGS (1)
  1. RHINOCORT [Suspect]
     Indication: NASAL CONGESTION
     Route: 045
     Dates: start: 20070215, end: 20070218

REACTIONS (1)
  - HYPOVENTILATION [None]
